FAERS Safety Report 8081704-9 (Version None)
Quarter: 2012Q1

REPORT INFORMATION
  Report Type: 
  Country: None (occurrence: None)
  Receive Date: 20120130
  Receipt Date: 20120117
  Transmission Date: 20120608
  Serious: Yes (Other)
  Sender: FDA-Public Use
  Company Number: US-MYLANLABS-2012S1001476

PATIENT
  Age: 6 Year
  Sex: Male

DRUGS (1)
  1. ETIDRONIC ACID [Suspect]
     Indication: VASCULAR CALCIFICATION
     Dosage: HIGH DOSE
     Route: 065

REACTIONS (4)
  - BONE DEVELOPMENT ABNORMAL [None]
  - BONE DENSITY DECREASED [None]
  - ARTICULAR CALCIFICATION [None]
  - MUSCULOSKELETAL DEFORMITY [None]
